FAERS Safety Report 14873542 (Version 2)
Quarter: 2018Q3

REPORT INFORMATION
  Report Type: Spontaneous
  Country: US (occurrence: US)
  Receive Date: 20180510
  Receipt Date: 20180906
  Transmission Date: 20181010
  Serious: No
  Sender: FDA-Public Use
  Company Number: US-PFIZER INC-2018188134

PATIENT
  Age: 63 Year
  Sex: Male
  Weight: 104.3 kg

DRUGS (1)
  1. LYRICA [Suspect]
     Active Substance: PREGABALIN
     Indication: NEUROPATHY PERIPHERAL
     Dosage: 100 MG, 3X/DAY
     Route: 048
     Dates: start: 201802

REACTIONS (7)
  - Condition aggravated [Unknown]
  - Weight increased [Unknown]
  - Fluid retention [Unknown]
  - Intentional product misuse [Unknown]
  - Pain [Unknown]
  - Malaise [Recovered/Resolved]
  - Somnolence [Recovered/Resolved]

NARRATIVE: CASE EVENT DATE: 201802
